FAERS Safety Report 12934359 (Version 1)
Quarter: 2016Q4

REPORT INFORMATION
  Report Type: Spontaneous
  Country: US (occurrence: US)
  Receive Date: 20161111
  Receipt Date: 20161111
  Transmission Date: 20170207
  Serious: Yes (Other)
  Sender: FDA-Public Use
  Company Number: US-SAOL THERAPEUTICS-2016SAO01009

PATIENT
  Age: 17 Year
  Sex: Male

DRUGS (1)
  1. BACLOFEN. [Suspect]
     Active Substance: BACLOFEN
     Route: 037

REACTIONS (3)
  - Cerebrospinal fluid leakage [Recovered/Resolved]
  - Spinal fusion surgery [Unknown]
  - Dural tear [Recovered/Resolved]

NARRATIVE: CASE EVENT DATE: 201609
